FAERS Safety Report 9686633 (Version 3)
Quarter: 2013Q4

REPORT INFORMATION
  Report Type: Spontaneous
  Country: JP (occurrence: JP)
  Receive Date: 20131113
  Receipt Date: 20131230
  Transmission Date: 20140711
  Serious: Yes (Hospitalization)
  Sender: FDA-Public Use
  Company Number: JP-GLAXOSMITHKLINE-B0942167A

PATIENT
  Age: 55 Year
  Sex: Female

DRUGS (3)
  1. VOTRIENT 200MG [Suspect]
     Indication: SOFT TISSUE CANCER
     Dosage: 800MG PER DAY
     Route: 048
     Dates: start: 20130826, end: 20131109
  2. GASTER D [Concomitant]
     Indication: ABDOMINAL DISCOMFORT
     Dosage: 20MG PER DAY
     Route: 048
     Dates: start: 20130627
  3. CELECOX [Concomitant]
     Indication: ANALGESIC THERAPY
     Dosage: 100MG TWICE PER DAY
     Route: 048
     Dates: start: 20130912

REACTIONS (2)
  - Retinal detachment [Recovering/Resolving]
  - Hypertension [Recovering/Resolving]
